FAERS Safety Report 6555781-8 (Version None)
Quarter: 2010Q1

REPORT INFORMATION
  Report Type: 
  Country: None (occurrence: None)
  Receive Date: 20100128
  Receipt Date: 20100119
  Transmission Date: 20100710
  Serious: Yes (Hospitalization)
  Sender: FDA-Public Use
  Company Number: IL-BAYER-201012734GPV

PATIENT
  Age: 65 Year
  Sex: Male
  Weight: 89 kg

DRUGS (7)
  1. SORAFENIB [Suspect]
     Indication: HEPATIC NEOPLASM MALIGNANT
     Dosage: TOTAL DAILY DOSE: 800 MG
     Route: 048
     Dates: start: 20100113
  2. ERLOTINIB [Suspect]
     Indication: HEPATIC NEOPLASM MALIGNANT
     Dosage: TOTAL DAILY DOSE: 150 MG
     Route: 048
     Dates: start: 20100113
  3. CARTIA XT [Concomitant]
     Indication: PROPHYLAXIS
     Route: 048
     Dates: start: 20050101
  4. NORMITEN [Concomitant]
     Indication: HYPERTENSION
     Route: 048
     Dates: start: 20070101
  5. LANTUS [Concomitant]
     Indication: DIABETES MELLITUS
     Dosage: 54 C
     Route: 058
     Dates: start: 20070101
  6. ZODORM [Concomitant]
     Indication: INSOMNIA
     Route: 048
     Dates: start: 20080101
  7. COZAAR [Concomitant]
     Indication: HYPERTENSION
     Route: 048
     Dates: start: 20080101

REACTIONS (1)
  - SOMNOLENCE [None]
